FAERS Safety Report 15504496 (Version 1)
Quarter: 2018Q4

REPORT INFORMATION
  Report Type: Spontaneous
  Country: GB (occurrence: GB)
  Receive Date: 20181016
  Receipt Date: 20181016
  Transmission Date: 20190205
  Serious: Yes (Hospitalization, Other)
  Sender: FDA-Public Use
  Company Number: GB-SAKK-2018SA255216AA

PATIENT
  Age: 24 Year
  Sex: Female

DRUGS (1)
  1. LEMTRADA [Suspect]
     Active Substance: ALEMTUZUMAB
     Indication: RELAPSING-REMITTING MULTIPLE SCLEROSIS
     Dosage: 12 MG, QD
     Route: 041
     Dates: start: 20180709, end: 20180713

REACTIONS (7)
  - Hepatic enzyme increased [Recovering/Resolving]
  - Therapeutic response decreased [Unknown]
  - Multiple sclerosis relapse [Unknown]
  - Lymphocyte count abnormal [Unknown]
  - Cytomegalovirus infection [Unknown]
  - Hypersensitivity [Recovering/Resolving]
  - Rash generalised [Recovering/Resolving]

NARRATIVE: CASE EVENT DATE: 2018
